FAERS Safety Report 19727893 (Version 1)
Quarter: 2021Q3

REPORT INFORMATION
  Report Type: Spontaneous
  Country: US (occurrence: US)
  Receive Date: 20210819
  Receipt Date: 20210819
  Transmission Date: 20211014
  Serious: No
  Sender: FDA-Public Use
  Company Number: None

PATIENT
  Sex: Female

DRUGS (1)
  1. BIKTARVY [Suspect]
     Active Substance: BICTEGRAVIR SODIUM\EMTRICITABINE\TENOFOVIR ALAFENAMIDE FUMARATE
     Indication: PROPHYLAXIS AGAINST HIV INFECTION
     Dosage: ?          OTHER STRENGTH:50?200?25MG;?
     Route: 048
     Dates: start: 20210428, end: 20210715

REACTIONS (6)
  - Gastrointestinal disorder [None]
  - Therapy interrupted [None]
  - Muscle spasms [None]
  - Feeling cold [None]
  - Peripheral swelling [None]
  - Lactic acidosis [None]
